FAERS Safety Report 15690197 (Version 2)
Quarter: 2018Q4

REPORT INFORMATION
  Report Type: Spontaneous
  Country: BE (occurrence: BE)
  Receive Date: 20181205
  Receipt Date: 20181226
  Transmission Date: 20190205
  Serious: Yes (Other)
  Sender: FDA-Public Use
  Company Number: BE-PFIZER INC-2018495164

PATIENT
  Sex: Female

DRUGS (1)
  1. ISUPREL [Suspect]
     Active Substance: ISOPROTERENOL HYDROCHLORIDE
     Dosage: 1 ML, UNK (1ML/HOUR)
     Route: 050

REACTIONS (6)
  - Aphasia [Unknown]
  - Seizure [Unknown]
  - Heart rate increased [Unknown]
  - Incorrect dose administered [Unknown]
  - Tremor [Unknown]
  - Back pain [Unknown]
